FAERS Safety Report 17291379 (Version 1)
Quarter: 2020Q1

REPORT INFORMATION
  Report Type: Spontaneous
  Country: US (occurrence: US)
  Receive Date: 20200117
  Receipt Date: 20200117
  Transmission Date: 20200409
  Serious: Yes (Other)
  Sender: FDA-Public Use
  Company Number: None

PATIENT
  Age: 82 Year
  Weight: 99.45 kg

DRUGS (3)
  1. ACETAMINOPHEN 325MG [Concomitant]
     Dates: start: 20200117
  2. DIPHENHYDRAMINE 25MG [Concomitant]
     Active Substance: DIPHENHYDRAMINE
     Dates: start: 20200117
  3. PRIVIGEN [Suspect]
     Active Substance: HUMAN IMMUNOGLOBULIN G
     Indication: SJOGREN^S SYNDROME
     Dosage: ?          OTHER FREQUENCY:QD X2 DAYS Q 4 WKS;?
     Route: 042
     Dates: start: 20200117, end: 20200117

REACTIONS (3)
  - Infusion related reaction [None]
  - Chills [None]
  - Throat irritation [None]

NARRATIVE: CASE EVENT DATE: 20200117
